FAERS Safety Report 4279613-6 (Version None)
Quarter: 2004Q1

REPORT INFORMATION
  Report Type: 
  Country: None (occurrence: None)
  Receive Date: 20040123
  Receipt Date: 20040112
  Transmission Date: 20041129
  Serious: Yes (Hospitalization)
  Sender: FDA-Public Use
  Company Number: 12475547

PATIENT
  Age: 50 Year
  Sex: Female

DRUGS (2)
  1. CISPLATIN [Suspect]
     Indication: SQUAMOUS CELL CARCINOMA OF SKIN
     Dosage: 2 CYCLE
  2. FLUOROURACIL [Suspect]
     Indication: SQUAMOUS CELL CARCINOMA OF SKIN
     Dosage: 2 CYCLE

REACTIONS (3)
  - CELLULITIS [None]
  - DEAFNESS NEUROSENSORY [None]
  - SEPSIS PASTEURELLA [None]
